FAERS Safety Report 6233782-7 (Version None)
Quarter: 2009Q2

REPORT INFORMATION
  Report Type: 
  Country: None (occurrence: None)
  Receive Date: 20090612
  Receipt Date: 20090612
  Transmission Date: 20091009
  Serious: Yes (Hospitalization)
  Sender: FDA-Public Use
  Company Number: None

PATIENT
  Sex: Male
  Weight: 92.1 kg

DRUGS (44)
  1. SORAFENIB [Suspect]
     Indication: MALIGNANT MELANOMA
     Dosage: SORAFENIB 200MG EVERY AM PO; SORAFENIB 400MG EVERY PM PO;
     Route: 048
     Dates: start: 20090424, end: 20090507
  2. ZOFRAN [Concomitant]
  3. VOLTARIN [Concomitant]
  4. CONATEDINCE [Concomitant]
  5. NASAL COM [Concomitant]
  6. SAW PALMETTO [Concomitant]
  7. FIBER CON [Concomitant]
  8. LOVENOX [Concomitant]
  9. CLARITIN [Concomitant]
  10. OXYCODONE HCL [Concomitant]
  11. COLACE [Concomitant]
  12. TYLENOL (CAPLET) [Concomitant]
  13. FENTANYL [Concomitant]
  14. ZALPIDENZ [Concomitant]
  15. POTASSIUM CHLORIDE [Concomitant]
  16. MAGNESIUM OXIDE [Concomitant]
  17. DECADRON [Concomitant]
  18. DILAUDID [Concomitant]
  19. BENADRYL [Concomitant]
  20. HYDROCORDISONE [Concomitant]
  21. AMBIEN [Concomitant]
  22. SENOKOT [Concomitant]
  23. DULCOLAX [Concomitant]
  24. MAG OXIDE [Concomitant]
  25. LACTATED RINGER'S [Concomitant]
  26. MORPHINE [Concomitant]
  27. VERSED [Concomitant]
  28. HEPARIN [Concomitant]
  29. VISIPAQUE [Concomitant]
  30. LIDOCAINE [Concomitant]
  31. CEFAZOLIN [Concomitant]
  32. GLYCOPYRROLATE [Concomitant]
  33. HYDROMORPHONE [Concomitant]
  34. MIDAZOLAM HCL [Concomitant]
  35. NEOSTIGMINE [Concomitant]
  36. ZOFRAN [Concomitant]
  37. PHENYLEPHRINE [Concomitant]
  38. PROPOFOL [Concomitant]
  39. PROTOMINE [Concomitant]
  40. VECURONIMUM [Concomitant]
  41. ZYVOX [Concomitant]
  42. CIPRO [Concomitant]
  43. TYLENOL (CAPLET) [Concomitant]
  44. TRIAMCINOLONE [Concomitant]

REACTIONS (3)
  - CELLULITIS [None]
  - SKIN ULCER [None]
  - WOUND INFECTION [None]
